FAERS Safety Report 4780280-3 (Version None)
Quarter: 2005Q3

REPORT INFORMATION
  Report Type: 
  Country: None (occurrence: None)
  Receive Date: 20050914
  Receipt Date: 20040730
  Transmission Date: 20060218
  Serious: Yes (Hospitalization, Other)
  Sender: FDA-Public Use
  Company Number: 163-20785-04080041

PATIENT
  Age: 71 Year
  Sex: Female
  Weight: 48.9885 kg

DRUGS (7)
  1. THALOMID [Suspect]
     Indication: METASTASIS
     Dosage: 100 MG, QHS, ORAL
     Route: 048
     Dates: start: 20040401
  2. THALOMID [Suspect]
     Indication: SMALL CELL LUNG CANCER STAGE UNSPECIFIED
     Dosage: 100 MG, QHS, ORAL
     Route: 048
     Dates: start: 20040401
  3. TEMODAR [Suspect]
     Indication: METASTASIS
     Dosage: 100 MG, QHS, ORAL
     Route: 048
     Dates: start: 20040401
  4. TEMODAR [Suspect]
     Indication: SMALL CELL LUNG CANCER STAGE UNSPECIFIED
     Dosage: 100 MG, QHS, ORAL
     Route: 048
     Dates: start: 20040401
  5. XELODA [Suspect]
     Indication: METASTASIS
     Dosage: 2000 MG, QHS, ORAL
     Route: 048
     Dates: start: 20040401
  6. XELODA [Suspect]
     Indication: SMALL CELL LUNG CANCER STAGE UNSPECIFIED
     Dosage: 2000 MG, QHS, ORAL
     Route: 048
     Dates: start: 20040401
  7. PROCRIT [Concomitant]

REACTIONS (1)
  - DEEP VEIN THROMBOSIS [None]
